FAERS Safety Report 24093260 (Version 3)
Quarter: 2024Q3

REPORT INFORMATION
  Report Type: Spontaneous
  Country: US (occurrence: US)
  Receive Date: 20240715
  Receipt Date: 20240909
  Transmission Date: 20241017
  Serious: Yes (Disabling, Other)
  Sender: PFIZER
  Company Number: US-PFIZER INC-202400212644

PATIENT
  Age: 23 Year
  Sex: Male
  Weight: 65.77 kg

DRUGS (2)
  1. BICILLIN L-A [Suspect]
     Active Substance: PENICILLIN G BENZATHINE
     Indication: Syphilis
     Dosage: 240,000 UNITS MILLILITER PER 4 MILLILITERS ONCE A WEEK
  2. BICILLIN L-A [Suspect]
     Active Substance: PENICILLIN G BENZATHINE
     Dosage: 2,400,000 UNITS BY INJECTION 1X A WEEK FOR 3 WEEKS (2 ML PER SITE INSTEAD OF 4 ML ALL IN ONE SITE)
     Route: 030
     Dates: start: 20240628

REACTIONS (1)
  - Injection site pain [Unknown]

NARRATIVE: CASE EVENT DATE: 20240629
